FAERS Safety Report 19217108 (Version 1)
Quarter: 2021Q2

REPORT INFORMATION
  Report Type: Spontaneous
  Country: CN (occurrence: CN)
  Receive Date: 20210505
  Receipt Date: 20210505
  Transmission Date: 20210717
  Serious: Yes (Other)
  Sender: FDA-Public Use
  Company Number: CN-PFIZER INC-2021439223

PATIENT
  Age: 91 Year
  Sex: Male

DRUGS (1)
  1. VFEND [Suspect]
     Active Substance: VORICONAZOLE
     Indication: PNEUMONIA
     Dosage: 200.000 MG, 2X/DAY
     Route: 048
     Dates: start: 20210326, end: 20210331

REACTIONS (5)
  - Hallucination, auditory [Recovered/Resolved]
  - Mental disorder [Recovered/Resolved]
  - Hallucination, visual [Recovered/Resolved]
  - Drug level increased [Unknown]
  - Disorganised speech [Recovered/Resolved]

NARRATIVE: CASE EVENT DATE: 2021
